FAERS Safety Report 10219378 (Version 3)
Quarter: 2014Q2

REPORT INFORMATION
  Report Type: Report from Study
  Country: US (occurrence: US)
  Receive Date: 20140605
  Receipt Date: 20140612
  Transmission Date: 20141212
  Serious: Yes (Death, Life-Threatening, Hospitalization)
  Sender: FDA-Public Use
  Company Number: US-009507513-1406USA001731

PATIENT
  Age: 55 Year
  Sex: Female
  Weight: 76.5 kg

DRUGS (3)
  1. VORINOSTAT [Suspect]
     Indication: ACUTE MYELOID LEUKAEMIA
     Dosage: 500 MG, TID, CYCLE 1
     Route: 048
     Dates: start: 20140503, end: 20140505
  2. CYTARABINE [Suspect]
     Indication: ACUTE MYELOID LEUKAEMIA
     Dosage: 1500 MG/M2/DAY, CYCLE 1
     Route: 042
     Dates: start: 20140506, end: 20140509
  3. IDARUBICIN [Suspect]
     Indication: ACUTE MYELOID LEUKAEMIA
     Dosage: 12 MG/M2/DAY, CYCLE 1
     Route: 042
     Dates: start: 20140506, end: 20140508

REACTIONS (11)
  - Colitis [Recovered/Resolved]
  - Lung infection [Recovered/Resolved]
  - Renal failure acute [Not Recovered/Not Resolved]
  - Decreased appetite [Not Recovered/Not Resolved]
  - Platelet count decreased [Not Recovered/Not Resolved]
  - Diarrhoea [Recovered/Resolved]
  - Hypernatraemia [Not Recovered/Not Resolved]
  - International normalised ratio increased [Not Recovered/Not Resolved]
  - Localised oedema [Not Recovered/Not Resolved]
  - Respiratory failure [Not Recovered/Not Resolved]
  - Death [Fatal]
